FAERS Safety Report 11175962 (Version 1)
Quarter: 2015Q2

REPORT INFORMATION
  Report Type: Spontaneous
  Country: US (occurrence: US)
  Receive Date: 20150609
  Receipt Date: 20150609
  Transmission Date: 20150821
  Serious: Yes (Hospitalization)
  Sender: FDA-Public Use
  Company Number: US-ACTELION-A-US2014-100825

PATIENT
  Age: 56 Year
  Sex: Male

DRUGS (1)
  1. VELETRI [Suspect]
     Active Substance: EPOPROSTENOL
     Indication: COR PULMONALE CHRONIC
     Dosage: 9.5 NG/KG, PER MIN
     Route: 042
     Dates: start: 20140311

REACTIONS (5)
  - Condition aggravated [Unknown]
  - Fluid retention [Unknown]
  - Headache [Unknown]
  - Ascites [Unknown]
  - Ammonia increased [Unknown]
